FAERS Safety Report 8727682 (Version 2)
Quarter: 2012Q4

REPORT INFORMATION
  Report Type: 
  Country: DK (occurrence: DK)
  Receive Date: 20120816
  Receipt Date: 20121008
  Transmission Date: 20130627
  Serious: Yes (Hospitalization, Other)
  Sender: FDA-Public Use
  Company Number: DK-FRI-1000037842

PATIENT
  Age: 26 None
  Sex: Female

DRUGS (5)
  1. CITALOPRAM [Suspect]
     Indication: ANXIETY
     Route: 048
     Dates: start: 20000518
  2. EFFEXOR [Suspect]
     Indication: ANXIETY
     Dates: start: 20000518
  3. ZYPREXA [Suspect]
     Indication: PSYCHOTIC DISORDER
     Dosage: titrated up to 30 mg daily
     Dates: start: 20000518, end: 20010122
  4. ZYPREXA [Suspect]
     Dosage: 30 mg
     Dates: start: 20010123, end: 20010522
  5. OXAZEPAM [Suspect]
     Indication: ANXIETY
     Route: 048
     Dates: start: 20000518

REACTIONS (15)
  - Acne [Unknown]
  - Psychotic disorder [Unknown]
  - Delusion [Unknown]
  - Dyslalia [Unknown]
  - Eating disorder [Unknown]
  - Generalised anxiety disorder [Unknown]
  - Headache [Unknown]
  - Antisocial behaviour [Unknown]
  - Memory impairment [Unknown]
  - Disturbance in attention [Unknown]
  - Obsessive thoughts [Unknown]
  - Schizophrenia, paranoid type [Unknown]
  - Depression [Unknown]
  - Fatigue [Unknown]
  - Weight increased [Unknown]
